FAERS Safety Report 10450279 (Version 1)
Quarter: 2014Q3

REPORT INFORMATION
  Report Type: Spontaneous
  Country: DK (occurrence: DE)
  Receive Date: 20140912
  Receipt Date: 20140912
  Transmission Date: 20150326
  Serious: Yes (Other)
  Sender: FDA-Public Use
  Company Number: DE-FRI-1000070576

PATIENT
  Sex: Female
  Weight: 3.32 kg

DRUGS (2)
  1. FOLIO [Concomitant]
     Active Substance: FOLIC ACID
     Indication: PROPHYLAXIS OF NEURAL TUBE DEFECT
     Dosage: 0.4 MG
     Route: 064
  2. ESCITALOPRAM [Suspect]
     Active Substance: ESCITALOPRAM OXALATE
     Dosage: 10 MG
     Route: 064
     Dates: start: 20130213, end: 20131111

REACTIONS (2)
  - Foetal exposure during pregnancy [Unknown]
  - Tachycardia foetal [Unknown]

NARRATIVE: CASE EVENT DATE: 20130213
